FAERS Safety Report 24630091 (Version 1)
Quarter: 2024Q4

REPORT INFORMATION
  Report Type: Spontaneous
  Country: US (occurrence: US)
  Receive Date: 20241118
  Receipt Date: 20241118
  Transmission Date: 20250114
  Serious: Yes (Life-Threatening, Hospitalization)
  Sender: LUPIN
  Company Number: US-LUPIN PHARMACEUTICALS INC.-2024-11107

PATIENT
  Age: 24 Year
  Sex: Female

DRUGS (4)
  1. LORAZEPAM [Suspect]
     Active Substance: LORAZEPAM
     Indication: Nausea
     Dosage: UNK
     Route: 065
  2. ADENOSINE [Concomitant]
     Active Substance: ADENOSINE
     Indication: Hypertension
     Dosage: UNK (5MG AND 10MG)
     Route: 065
  3. NALBUPHINE HYDROCHLORIDE [Concomitant]
     Active Substance: NALBUPHINE HYDROCHLORIDE
     Indication: Abdominal pain
     Dosage: UNK
     Route: 065
  4. PROCAINAMIDE HYDROCHLORIDE [Concomitant]
     Active Substance: PROCAINAMIDE HYDROCHLORIDE
     Indication: Arrhythmia
     Dosage: UNK (MAX DOSE OF 50MCG/KG/MIN)
     Route: 065

REACTIONS (1)
  - Drug ineffective [Unknown]
